FAERS Safety Report 12640560 (Version 7)
Quarter: 2017Q3

REPORT INFORMATION
  Report Type: Spontaneous
  Country: BR (occurrence: BR)
  Receive Date: 20160810
  Receipt Date: 20170705
  Transmission Date: 20171127
  Serious: Yes (Other)
  Sender: FDA-Public Use
  Company Number: BR-PFIZER INC-2016380906

PATIENT
  Age: 76 Year
  Sex: Male

DRUGS (2)
  1. CAVERJECT [Suspect]
     Active Substance: ALPROSTADIL
     Indication: ERECTILE DYSFUNCTION
     Dosage: 10 UG, 1 APPLICATION EVERY 20 DAYS (ALSO REPORTED EVERY 10 DAYS)(ONCE A WEEK)
     Dates: start: 2015
  2. CAVERJECT [Suspect]
     Active Substance: ALPROSTADIL
     Dosage: 20 UG
     Dates: end: 201702

REACTIONS (8)
  - Emotional distress [Unknown]
  - Needle issue [Recovered/Resolved]
  - Drug ineffective [Recovered/Resolved]
  - Foreign body in reproductive tract [Recovered/Resolved]
  - Fear [Unknown]
  - Product label issue [Recovered/Resolved]
  - Product quality issue [Recovered/Resolved]
  - Injection site discolouration [Recovered/Resolved]

NARRATIVE: CASE EVENT DATE: 201606
